FAERS Safety Report 23063866 (Version 2)
Quarter: 2023Q4

REPORT INFORMATION
  Report Type: Spontaneous
  Country: JP (occurrence: None)
  Receive Date: 20231013
  Receipt Date: 20231020
  Transmission Date: 20240109
  Serious: Yes (Death)
  Sender: FDA-Public Use
  Company Number: 2023A232373

PATIENT
  Age: 79 Year
  Sex: Female

DRUGS (2)
  1. ONDEXXYA [Suspect]
     Active Substance: ANDEXANET ALFA
     Indication: Aortoenteric fistula
     Dosage: DOSE UNKNOWN
     Route: 042
  2. ELIQUIS [Concomitant]
     Active Substance: APIXABAN
     Dosage: 10.0MG UNKNOWN

REACTIONS (1)
  - Death [Fatal]
